FAERS Safety Report 5887955-3 (Version None)
Quarter: 2008Q3

REPORT INFORMATION
  Report Type: 
  Country: None (occurrence: None)
  Receive Date: 20080918
  Receipt Date: 20080910
  Transmission Date: 20090109
  Serious: Yes (Other)
  Sender: FDA-Public Use
  Company Number: B0525309A

PATIENT
  Age: 49 Year
  Sex: Male

DRUGS (4)
  1. DEROXAT [Suspect]
     Indication: DEPRESSION
     Dosage: 20MG PER DAY
     Route: 048
     Dates: start: 20080128, end: 20080701
  2. ALEPSAL [Concomitant]
     Indication: EPILEPSY
     Dosage: 50MG PER DAY
     Route: 048
  3. URBANYL [Concomitant]
     Indication: ANXIETY
     Dosage: 5MG PER DAY
     Route: 048
  4. STILNOX [Concomitant]
     Indication: INSOMNIA
     Dosage: 10MG PER DAY
     Route: 048

REACTIONS (6)
  - CONFUSIONAL STATE [None]
  - DISORIENTATION [None]
  - ECCHYMOSIS [None]
  - FEELING ABNORMAL [None]
  - HALLUCINATION, VISUAL [None]
  - WITHDRAWAL SYNDROME [None]
